FAERS Safety Report 12220544 (Version 1)
Quarter: 2016Q1

REPORT INFORMATION
  Report Type: Spontaneous
  Country: US (occurrence: US)
  Receive Date: 20160330
  Receipt Date: 20160330
  Transmission Date: 20160526
  Serious: No
  Sender: FDA-Public Use
  Company Number: US-MYLANLABS-2016M1002517

PATIENT
  Sex: Female

DRUGS (9)
  1. METHYLPHENIDATE. [Concomitant]
     Active Substance: METHYLPHENIDATE
     Dosage: UNK
  2. EMSAM [Suspect]
     Active Substance: SELEGILINE
     Indication: DEPRESSION
     Dosage: UNK UNK, QD
     Route: 062
     Dates: start: 20151119, end: 201512
  3. EMSAM [Suspect]
     Active Substance: SELEGILINE
     Dosage: UNK
     Route: 062
     Dates: start: 201601
  4. AMLODIPINE [Concomitant]
     Active Substance: AMLODIPINE BESYLATE
     Dosage: UNK
  5. BREXPIPRAZOLE [Concomitant]
     Active Substance: BREXPIPRAZOLE
     Dosage: UNK
  6. LOSARTAN. [Concomitant]
     Active Substance: LOSARTAN
     Dosage: UNK
  7. HYDROCHLOROTHIAZIDE. [Concomitant]
     Active Substance: HYDROCHLOROTHIAZIDE
     Dosage: UNK
  8. SYNTHROID [Concomitant]
     Active Substance: LEVOTHYROXINE SODIUM
     Dosage: UNK
  9. LUNESTA [Concomitant]
     Active Substance: ESZOPICLONE
     Dosage: UNK

REACTIONS (1)
  - Application site erythema [Not Recovered/Not Resolved]

NARRATIVE: CASE EVENT DATE: 20151119
